FAERS Safety Report 6183980-6 (Version None)
Quarter: 2009Q2

REPORT INFORMATION
  Report Type: 
  Country: None (occurrence: None)
  Receive Date: 20090506
  Receipt Date: 20090506
  Transmission Date: 20091009
  Serious: No
  Sender: FDA-Public Use
  Company Number: None

PATIENT
  Sex: Female
  Weight: 88.64 kg

DRUGS (3)
  1. HYDROQUINONE 4%/SUNSCREEN [Suspect]
     Dosage: 1 APPLICATION BID TOPICAL
     Route: 061
     Dates: start: 20060130, end: 20090505
  2. LORATADINE [Concomitant]
  3. PRILOSEC OTC (OMEPRAZOLE OTC) [Concomitant]

REACTIONS (1)
  - RASH [None]
